FAERS Safety Report 9588638 (Version 1)
Quarter: 2013Q4

REPORT INFORMATION
  Report Type: Spontaneous
  Country: US (occurrence: US)
  Receive Date: 20131003
  Receipt Date: 20131003
  Transmission Date: 20140711
  Serious: No
  Sender: FDA-Public Use
  Company Number: US-AMGEN-USASP2012065125

PATIENT
  Age: 30 Year
  Sex: Female
  Weight: 113.38 kg

DRUGS (6)
  1. ENBREL [Suspect]
     Indication: PRODUCT USED FOR UNKNOWN INDICATION
     Dosage: 50 MG, QWK
     Route: 058
  2. PREDNISONE [Concomitant]
     Dosage: 10 MG, UNK
  3. TUMS                               /00193601/ [Concomitant]
     Dosage: 500 MG, UNK
  4. VITAMIN D                          /00107901/ [Concomitant]
     Dosage: 50000 UNIT, UNK
  5. CALCIUM [Concomitant]
     Dosage: 500 UNK, UNK
  6. MULTICAPS [Concomitant]
     Dosage: UNK

REACTIONS (3)
  - Injection site warmth [Unknown]
  - Injection site pruritus [Unknown]
  - Injection site erythema [Unknown]
